FAERS Safety Report 7115626-4 (Version None)
Quarter: 2010Q4

REPORT INFORMATION
  Report Type: 
  Country: None (occurrence: None)
  Receive Date: 20101122
  Receipt Date: 20101111
  Transmission Date: 20110411
  Serious: Yes (Disabling)
  Sender: FDA-Public Use
  Company Number: US-ASTRAZENECA-2010SE38545

PATIENT
  Age: 774 Month
  Sex: Female
  Weight: 99.8 kg

DRUGS (3)
  1. ARIMIDEX [Suspect]
     Indication: BREAST CANCER
     Route: 048
     Dates: start: 20060401, end: 20100510
  2. CRESTOR [Concomitant]
     Indication: HYPERCHOLESTEROLAEMIA
     Route: 048
  3. ZESTORETIC [Concomitant]
     Indication: HYPERTENSION
     Dosage: 20/12.5 MG DAILY
     Route: 048

REACTIONS (4)
  - ARTHRALGIA [None]
  - ASTHENIA [None]
  - GAIT DISTURBANCE [None]
  - WALKING DISABILITY [None]
